FAERS Safety Report 26076039 (Version 1)
Quarter: 2025Q4

REPORT INFORMATION
  Report Type: Spontaneous
  Country: US (occurrence: US)
  Receive Date: 20251121
  Receipt Date: 20251121
  Transmission Date: 20260119
  Serious: Yes (Other)
  Sender: BAUSCH AND LOMB
  Company Number: US-BAUSCH-BH-2025-020618

PATIENT
  Age: 81 Year
  Sex: Male

DRUGS (12)
  1. FLUCYTOSINE [Suspect]
     Active Substance: FLUCYTOSINE
     Indication: Balamuthia infection
     Route: 065
  2. FLUCYTOSINE [Suspect]
     Active Substance: FLUCYTOSINE
     Indication: Encephalitis protozoal
  3. MILTEFOSINE [Suspect]
     Active Substance: MILTEFOSINE
     Indication: Balamuthia infection
     Route: 065
  4. MILTEFOSINE [Suspect]
     Active Substance: MILTEFOSINE
     Indication: Encephalitis protozoal
  5. AZITHROMYCIN [Suspect]
     Active Substance: AZITHROMYCIN
     Indication: Balamuthia infection
     Route: 065
  6. AZITHROMYCIN [Suspect]
     Active Substance: AZITHROMYCIN
     Indication: Encephalitis protozoal
  7. FLUCONAZOLE [Suspect]
     Active Substance: FLUCONAZOLE
     Indication: Balamuthia infection
     Route: 065
  8. FLUCONAZOLE [Suspect]
     Active Substance: FLUCONAZOLE
     Indication: Encephalitis protozoal
  9. SULFADIAZINE [Suspect]
     Active Substance: SULFADIAZINE
     Indication: Balamuthia infection
     Route: 065
  10. SULFADIAZINE [Suspect]
     Active Substance: SULFADIAZINE
     Indication: Encephalitis protozoal
  11. ALBENDAZOLE [Suspect]
     Active Substance: ALBENDAZOLE
     Indication: Balamuthia infection
     Route: 065
  12. ALBENDAZOLE [Suspect]
     Active Substance: ALBENDAZOLE
     Indication: Encephalitis protozoal

REACTIONS (5)
  - Toxicity to various agents [Unknown]
  - Acute kidney injury [Unknown]
  - Liver injury [Unknown]
  - Nausea [Unknown]
  - Vomiting [Unknown]
